FAERS Safety Report 5310930-4 (Version None)
Quarter: 2007Q2

REPORT INFORMATION
  Report Type: 
  Country: None (occurrence: None)
  Receive Date: 20070430
  Receipt Date: 20070418
  Transmission Date: 20071010
  Serious: Yes (Hospitalization, Other)
  Sender: FDA-Public Use
  Company Number: HQWYE696619APR07

PATIENT
  Age: 18 Year
  Sex: Female
  Weight: 50.4 kg

DRUGS (8)
  1. EFFEXOR XR [Suspect]
  2. EFFEXOR XR [Interacting]
     Dosage: ^DOSE INCREASED WEEKLY^
  3. EFFEXOR XR [Interacting]
  4. EFFEXOR XR [Interacting]
  5. EFFEXOR XR [Interacting]
     Dosage: WEANED OFF
  6. STRATTERA [Interacting]
     Indication: ATTENTION DEFICIT/HYPERACTIVITY DISORDER
  7. STRATTERA [Interacting]
  8. STRATTERA [Interacting]

REACTIONS (5)
  - DRUG INTERACTION [None]
  - DYSKINESIA [None]
  - ELECTROCARDIOGRAM QT CORRECTED INTERVAL PROLONGED [None]
  - SPEECH DISORDER [None]
  - TREMOR [None]
